FAERS Safety Report 6693394-8 (Version None)
Quarter: 2010Q2

REPORT INFORMATION
  Report Type: 
  Country: None (occurrence: None)
  Receive Date: 20100420
  Receipt Date: 20100413
  Transmission Date: 20101027
  Serious: Yes (Death)
  Sender: FDA-Public Use
  Company Number: 2010US001233

PATIENT
  Age: 56 Year
  Sex: Male

DRUGS (5)
  1. PROGRAF [Suspect]
     Indication: LUNG TRANSPLANT
  2. BASILIXIMAB (BASILIXIMAB) [Suspect]
     Indication: LUNG TRANSPLANT
  3. METHYLPREDNISOLONE [Suspect]
     Indication: LUNG TRANSPLANT
  4. PREDNISONE TAB [Suspect]
     Indication: LUNG TRANSPLANT
  5. MYCOPHENOLATE MOFETIL [Suspect]
     Indication: LUNG TRANSPLANT

REACTIONS (1)
  - OESOPHAGEAL ADENOCARCINOMA [None]
